FAERS Safety Report 9494262 (Version 1)
Quarter: 2013Q3

REPORT INFORMATION
  Report Type: Spontaneous
  Country: US (occurrence: None)
  Receive Date: 20130828
  Receipt Date: 20130828
  Transmission Date: 20140515
  Serious: Yes (Hospitalization, Other)
  Sender: FDA-Public Use
  Company Number: FK201303636

PATIENT
  Age: 22 Year
  Sex: Female

DRUGS (3)
  1. VANCOMYCIN (MANUFACTURER UNKNOWN) (VANCOMYCIN) (VANCOMYCIN) [Suspect]
     Indication: CELLULITIS
     Dosage: 18 MG/KG, (1500 MG) EVERY 8 HOURS, UNKNOWN
  2. CLINDAMYCIN (MANUFACTURER UNKNOWN) (CLINDAMYCIN) (CLINDAMYCIN) [Suspect]
     Indication: CELLULITIS
  3. ZOSYN (PIP/TAZO) [Suspect]
     Indication: CELLULITIS

REACTIONS (4)
  - Toxicity to various agents [None]
  - Renal failure acute [None]
  - Haemodialysis [None]
  - Maternal exposure during pregnancy [None]
